FAERS Safety Report 5758704-4 (Version None)
Quarter: 2008Q2

REPORT INFORMATION
  Report Type: 
  Country: None (occurrence: None)
  Receive Date: 20080603
  Receipt Date: 20080603
  Transmission Date: 20081010
  Serious: Yes (Life-Threatening)
  Sender: FDA-Public Use
  Company Number: None

PATIENT
  Sex: Male

DRUGS (2)
  1. PROTAMINE SULFATE [Suspect]
     Indication: HEPARIN RESISTANCE
     Dosage: 250 MG X1 IV
     Route: 042
     Dates: start: 20080428, end: 20080428
  2. PROTAMINE SULFATE [Suspect]
     Indication: HEPARIN RESISTANCE
     Dosage: 250 MG X1 IV
     Route: 042
     Dates: start: 20080428, end: 20080428

REACTIONS (2)
  - PULMONARY HYPERTENSION [None]
  - RIGHT VENTRICULAR FAILURE [None]
